FAERS Safety Report 9862475 (Version 2)
Quarter: 2014Q1

REPORT INFORMATION
  Report Type: Spontaneous
  Country: NL (occurrence: NL)
  Receive Date: 20140203
  Receipt Date: 20140203
  Transmission Date: 20141002
  Serious: Yes (Other)
  Sender: FDA-Public Use
  Company Number: PHHY2013NL150512

PATIENT
  Age: 52 Year
  Sex: Female
  Weight: 69 kg

DRUGS (6)
  1. SOTALOL SANDOZ [Suspect]
     Indication: ATRIAL FIBRILLATION
     Dosage: 40 MG, BID
     Dates: start: 20130710
  2. SOTALOL SANDOZ [Suspect]
     Dosage: 40 MG, TID
     Dates: start: 20130712
  3. SOTALOL SANDOZ [Suspect]
     Dosage: 80 MG, BID
     Dates: start: 20130715
  4. SOTALOL SANDOZ [Suspect]
     Dates: start: 20131107
  5. ASCAL CARDIO BRISPER [Concomitant]
     Dosage: 100 MG, QD
  6. METOPROLOL [Concomitant]
     Indication: ATRIAL FIBRILLATION

REACTIONS (10)
  - Raynaud^s phenomenon [Recovered/Resolved]
  - Alopecia [Recovering/Resolving]
  - Muscle disorder [Recovered/Resolved]
  - Gait disturbance [Unknown]
  - Bradyphrenia [Recovered/Resolved]
  - Peripheral coldness [Unknown]
  - Visual acuity reduced [Recovering/Resolving]
  - Asthenia [Recovered/Resolved]
  - Dyspnoea [Recovered/Resolved]
  - Pallor [Unknown]
